FAERS Safety Report 7919613-5 (Version None)
Quarter: 2011Q4

REPORT INFORMATION
  Report Type: 
  Country: None (occurrence: None)
  Receive Date: 20111115
  Receipt Date: 20111110
  Transmission Date: 20120403
  Serious: Yes (Disabling)
  Sender: FDA-Public Use
  Company Number: AUR-APL-2011-05802

PATIENT
  Age: 79 Year
  Sex: Female
  Weight: 61.5 kg

DRUGS (20)
  1. ASPIRIN [Concomitant]
  2. DURAPHAT (SODIUM FLUORIDE) [Concomitant]
  3. OVAR (BELCOMETHASONE DIPROPRIOANTE) [Concomitant]
  4. FUROSEMIDE [Concomitant]
  5. NASEPTIN (NASEPTIN) [Concomitant]
  6. RAMIPRIL [Concomitant]
  7. SODIUM CHLORIDE 0.9% [Concomitant]
  8. ATROVASTATIN (ATORVASTATIN) [Concomitant]
  9. METHOTREXATE [Concomitant]
  10. MORPHINE SULFATE [Concomitant]
  11. ACETAMINOPHEN W/ CODEINE [Concomitant]
  12. MATRIFEN (FENTANYL) [Concomitant]
  13. DOXAZOSIN MESYLATE [Concomitant]
  14. HIBISCRUB (CHLORHEXIDINE GLUCONATE) [Concomitant]
  15. OMEPRAZOLE [Concomitant]
  16. ALBUTEROL SULFATE [Concomitant]
  17. BISOPROLOL FUMARATE [Concomitant]
  18. ALENDRONIC ACID (ALENDRONIC ACID) (ALENDRONIC ACID) [Suspect]
     Indication: PRODUCT USED FOR UNKNOWN INDICATION
     Dates: start: 20111026
  19. PREDNISOLONE [Concomitant]
  20. VISCOPASTE (ZINC OXIDE) [Concomitant]

REACTIONS (2)
  - OSTEONECROSIS [None]
  - OSTEONECROSIS OF JAW [None]
